FAERS Safety Report 9163550 (Version 1)
Quarter: 2013Q1

REPORT INFORMATION
  Report Type: Spontaneous
  Country: FR (occurrence: None)
  Receive Date: 20130221
  Receipt Date: 20130221
  Transmission Date: 20140127
  Serious: Yes (Hospitalization)
  Sender: FDA-Public Use
  Company Number: SYM-2013-00517

PATIENT
  Sex: Male

DRUGS (5)
  1. FLUOROURACIL [Suspect]
     Indication: ADENOCARCINOMA PANCREAS
  2. OXALIPLATIN [Suspect]
     Indication: ADENOCARCINOMA PANCREAS
     Dosage: UNKNOWN,  UNKNOWN
  3. IRINOTECAN [Suspect]
     Indication: ADENOCARCINOMA PANCREAS
     Dosage: UNKNOWN,  UNKNOWN
  4. STEROID ANTIBACTERIALS [Suspect]
     Indication: INTESTINAL OBSTRUCTION
     Dosage: UNKNOWN,  UNKNOWN
  5. GRANULOCYTE  COLONY  STIMULATING  FACTOR  (GRANULOCYTE  COLONY  STIMULATING  FACTOR)  (UNKNOWN)  (GRANULOCYTE  COLONY  STIMULATING  FACTOR) [Concomitant]

REACTIONS (4)
  - Pneumocystis jirovecii pneumonia [None]
  - Febrile neutropenia [None]
  - Bronchopulmonary aspergillosis [None]
  - C-reactive protein decreased [None]
